FAERS Safety Report 7585397-6 (Version None)
Quarter: 2011Q2

REPORT INFORMATION
  Report Type: 
  Country: None (occurrence: None)
  Receive Date: 20110628
  Receipt Date: 20110628
  Transmission Date: 20111010
  Serious: Yes (Other)
  Sender: FDA-Public Use
  Company Number: None

PATIENT
  Age: 40 Year
  Sex: Female
  Weight: 70.3075 kg

DRUGS (1)
  1. LEVAQUIN [Suspect]
     Indication: SINUSITIS
     Dosage: 500MG 1 PO
     Route: 048
     Dates: start: 20110510, end: 20110515

REACTIONS (5)
  - FATIGUE [None]
  - TENDONITIS [None]
  - GAIT DISTURBANCE [None]
  - PAIN [None]
  - PAIN IN EXTREMITY [None]
